FAERS Safety Report 23472406 (Version 4)
Quarter: 2024Q3

REPORT INFORMATION
  Report Type: Spontaneous
  Country: MX (occurrence: None)
  Receive Date: 20240202
  Receipt Date: 20240709
  Transmission Date: 20241017
  Serious: Yes (Death, Hospitalization, Other)
  Sender: ASTRAZENECA
  Company Number: 2024A026702

PATIENT
  Age: 77 Year
  Sex: Female
  Weight: 71 kg

DRUGS (5)
  1. OLAPARIB [Suspect]
     Active Substance: OLAPARIB
     Indication: Colon cancer
     Dosage: 200 MILLIGRAM, Q3W
     Route: 048
     Dates: start: 20201202, end: 20221206
  2. OLAPARIB [Suspect]
     Active Substance: OLAPARIB
     Indication: Colon cancer
     Dosage: 600 MILLIGRAM, Q12H, STRENGTH: 150 MG
     Route: 048
     Dates: start: 20201202, end: 20221116
  3. OLAPARIB [Suspect]
     Active Substance: OLAPARIB
     Indication: Colon cancer
     Route: 048
  4. OLAPARIB [Suspect]
     Active Substance: OLAPARIB
     Indication: Colon cancer
     Route: 048
     Dates: start: 20201202, end: 20221206
  5. PEMBROLIZUMAB [Suspect]
     Active Substance: PEMBROLIZUMAB
     Indication: Metastases to liver
     Dates: start: 20201202, end: 20221116

REACTIONS (3)
  - Pneumonia bacterial [Fatal]
  - Nausea [Recovered/Resolved]
  - Vomiting [Recovered/Resolved]

NARRATIVE: CASE EVENT DATE: 20201203
